FAERS Safety Report 12240700 (Version 1)
Quarter: 2016Q2

REPORT INFORMATION
  Report Type: Spontaneous
  Country: US (occurrence: US)
  Receive Date: 20160406
  Receipt Date: 20160406
  Transmission Date: 20160815
  Serious: Yes (Hospitalization)
  Sender: FDA-Public Use
  Company Number: US-HOSPIRA-3234418

PATIENT
  Age: 60 Year
  Sex: Female

DRUGS (4)
  1. AMPICILLIN AND SULBACTAM [Concomitant]
     Active Substance: AMPICILLIN SODIUM\SULBACTAM SODIUM
     Indication: LAPAROTOMY
     Route: 042
  2. IMIPENEM AND CILASTATIN [Suspect]
     Active Substance: CILASTATIN SODIUM\IMIPENEM
     Indication: COLECTOMY
     Route: 065
     Dates: start: 20150806
  3. IMIPENEM AND CILASTATIN [Suspect]
     Active Substance: CILASTATIN SODIUM\IMIPENEM
     Indication: LAPAROTOMY
     Route: 065
     Dates: start: 20150806
  4. IMIPENEM AND CILASTATIN [Suspect]
     Active Substance: CILASTATIN SODIUM\IMIPENEM
     Indication: COLOSTOMY
     Route: 065
     Dates: start: 20150806

REACTIONS (1)
  - Eosinophilic pneumonia acute [Recovering/Resolving]

NARRATIVE: CASE EVENT DATE: 20150807
